FAERS Safety Report 5201321-5 (Version None)
Quarter: 2006Q4

REPORT INFORMATION
  Report Type: 
  Country: None (occurrence: None)
  Receive Date: 20061016
  Receipt Date: 20060713
  Transmission Date: 20070319
  Serious: No
  Sender: FDA-Public Use
  Company Number: 2006SP002708

PATIENT
  Age: 55 Year
  Sex: Male
  Weight: 83.9154 kg

DRUGS (7)
  1. LUNESTA [Suspect]
     Indication: INITIAL INSOMNIA
     Dosage: 3 MG HS ORAL
     Route: 048
     Dates: start: 20050101
  2. WELLBUTRIN [Concomitant]
  3. LEXAPRO [Concomitant]
  4. PLAVIX [Concomitant]
  5. ATENOLOL [Concomitant]
  6. PROVIGI; [Concomitant]
  7. ASPIRIN [Concomitant]

REACTIONS (1)
  - INSOMNIA [None]
